FAERS Safety Report 17577282 (Version 1)
Quarter: 2020Q1

REPORT INFORMATION
  Report Type: Spontaneous
  Country: US (occurrence: US)
  Receive Date: 20200324
  Receipt Date: 20200324
  Transmission Date: 20200409
  Serious: No
  Sender: FDA-Public Use
  Company Number: US-SCILEX PHARMACEUTICALS INC.-2020SCX00006

PATIENT
  Age: 67 Year
  Sex: Male
  Weight: 77.55 kg

DRUGS (1)
  1. ZTLIDO [Suspect]
     Active Substance: LIDOCAINE
     Indication: BACK PAIN
     Dosage: 1 PATCH, 1X/DAY APPLIED TO THE SMALL OF THE BACK FOR 12 HOURS
     Route: 061
     Dates: start: 202001, end: 202001

REACTIONS (3)
  - Photopsia [Recovered/Resolved]
  - Product use in unapproved indication [Recovered/Resolved]
  - Dizziness [Recovered/Resolved]

NARRATIVE: CASE EVENT DATE: 202001
